FAERS Safety Report 21300695 (Version 2)
Quarter: 2022Q4

REPORT INFORMATION
  Report Type: Report from Study
  Country: US (occurrence: US)
  Receive Date: 20220907
  Receipt Date: 20221129
  Transmission Date: 20230113
  Serious: Yes (Hospitalization, Other)
  Sender: FDA-Public Use
  Company Number: US-BRISTOL-MYERS SQUIBB COMPANY-2022-101432

PATIENT
  Age: 63 Year
  Sex: Male
  Weight: 90.72 kg

DRUGS (4)
  1. REVLIMID [Suspect]
     Active Substance: LENALIDOMIDE
     Indication: Plasma cell myeloma
     Dosage: ADMINISTERED 1 CAPSULE DAILY ON DAYS 1 THROUGH 28 OF A 28 DAY CYCLE
     Route: 065
     Dates: start: 20190818
  2. DEXAMETHASONE [Suspect]
     Active Substance: DEXAMETHASONE
     Indication: Product used for unknown indication
     Route: 065
  3. CYCLOBENZAPRINE HYDROCHLORIDE [Concomitant]
     Active Substance: CYCLOBENZAPRINE HYDROCHLORIDE
  4. HYDROXYZINE [Concomitant]
     Active Substance: HYDROXYZINE HYDROCHLORIDE

REACTIONS (5)
  - Spinal fracture [Unknown]
  - Rib fracture [Unknown]
  - Cataract [Unknown]
  - Diverticulitis [Recovering/Resolving]
  - Off label use [Unknown]
